FAERS Safety Report 7741119-7 (Version None)
Quarter: 2011Q3

REPORT INFORMATION
  Report Type: 
  Country: None (occurrence: None)
  Receive Date: 20110909
  Receipt Date: 20110831
  Transmission Date: 20111222
  Serious: Yes (Other)
  Sender: FDA-Public Use
  Company Number: US-BAYER-2011-016519

PATIENT
  Sex: Female
  Weight: 95 kg

DRUGS (63)
  1. GADOLINIUM IN UNSPECIFIED DRUG [Suspect]
     Indication: NUCLEAR MAGNETIC RESONANCE IMAGING BRAIN
     Dosage: UNK, ONCE
     Dates: start: 20060202, end: 20060202
  2. GADOLINIUM IN UNSPECIFIED DRUG [Suspect]
     Dosage: UNK
     Dates: start: 20060505, end: 20060505
  3. PRANDIN [Concomitant]
  4. CARVEDILOL [Concomitant]
  5. ENOXAPARIN [Concomitant]
  6. MEPROZINE [Concomitant]
  7. LUNESTA [Concomitant]
  8. GADOLINIUM IN UNSPECIFIED DRUG [Suspect]
     Indication: NUCLEAR MAGNETIC RESONANCE IMAGING
     Dosage: UNK UNK, ONCE
     Dates: start: 20050817, end: 20050817
  9. GADOLINIUM IN UNSPECIFIED DRUG [Suspect]
     Dosage: UNK
     Dates: start: 20060419, end: 20060419
  10. TORSEMIDE [Concomitant]
  11. ADVAIR DISKUS 100/50 [Concomitant]
  12. DIGOXIN [Concomitant]
  13. LASIX [Concomitant]
  14. BENZONATATE [Concomitant]
  15. MICROLET [Concomitant]
  16. AMBIEN [Concomitant]
  17. ALBUTEROL SULFATE AUTOHALER [Concomitant]
  18. OMNISCAN [Suspect]
     Indication: IMAGING PROCEDURE
     Dosage: UNK UNK, ONCE
     Dates: start: 20050420, end: 20050420
  19. GLUCOPHAGE [Concomitant]
  20. METFORMIN [Concomitant]
  21. LANTUS [Concomitant]
  22. LEVAQUIN [Concomitant]
  23. CEFZIL [Concomitant]
  24. NIFEDIPINE [Concomitant]
  25. FLUCONAZOLE [Concomitant]
  26. OPTIMARK [Suspect]
     Indication: IMAGING PROCEDURE
  27. ACTOS [Concomitant]
  28. HYDROCODONE BITARTRATE [Concomitant]
  29. GABAPENTIN [Concomitant]
  30. ETHYL CHLORIDE [Concomitant]
  31. CEFAZOLIN [Concomitant]
  32. PARACETAMOL W/TRAMADOL HYDROCHLORIDE [Concomitant]
  33. OMNISCAN [Suspect]
     Dosage: UNK, ONCE
     Dates: start: 20050818, end: 20050818
  34. EFFEXOR XR [Concomitant]
  35. SERTRALINE HYDROCHLORIDE [Concomitant]
  36. AMOXICILLIN [Concomitant]
  37. FLAGYL [Concomitant]
  38. HYDROCODONE/GUAIFENESIN [Concomitant]
  39. CARDIZEM LA [Concomitant]
  40. PIOGLITAZONE [Concomitant]
  41. INSULIN [Concomitant]
  42. OMNISCAN [Suspect]
     Dosage: UNK, ONCE
     Dates: start: 20051220, end: 20051220
  43. OMNISCAN [Suspect]
     Dosage: UNK
     Dates: start: 20060203, end: 20060203
  44. VICODIN [Concomitant]
  45. AMIODARONE HCL [Concomitant]
  46. MORPHINE SULFATE [Concomitant]
  47. TIZANIDINE HCL [Concomitant]
  48. XOPENEX [Concomitant]
  49. SUCRALFATE [Concomitant]
  50. NPH INSULIN [Concomitant]
  51. CLONAZEPAM [Concomitant]
  52. CEFADROXIL [Concomitant]
  53. VALSARTAN [Concomitant]
  54. TAMOXIFEN CITRATE [Concomitant]
  55. NITROFURANTOIN [Concomitant]
  56. CEPHALEXIN [Concomitant]
  57. CEFUROXIME [Concomitant]
  58. POTASSIUM CHLORIDE [Concomitant]
  59. OMNISCAN [Suspect]
     Dosage: UNK, ONCE
     Dates: start: 20051101, end: 20051101
  60. GLYBURIDE [Concomitant]
  61. FENTANYL-100 [Concomitant]
  62. OXYCODONE HCL [Concomitant]
  63. PROMETHAZINE [Concomitant]

REACTIONS (10)
  - NEPHROGENIC SYSTEMIC FIBROSIS [None]
  - GENERAL PHYSICAL HEALTH DETERIORATION [None]
  - SKIN LESION [None]
  - PAIN IN EXTREMITY [None]
  - SCAR [None]
  - ERYTHEMA [None]
  - PAIN [None]
  - HYPOAESTHESIA [None]
  - DEFORMITY [None]
  - OEDEMA PERIPHERAL [None]
